FAERS Safety Report 13131065 (Version 5)
Quarter: 2017Q2

REPORT INFORMATION
  Report Type: Report from Study
  Country: US (occurrence: US)
  Receive Date: 20170119
  Receipt Date: 20170417
  Transmission Date: 20170830
  Serious: Yes (Death, Hospitalization, Other)
  Sender: FDA-Public Use
  Company Number: US-JNJFOC-20161104494

PATIENT
  Age: 92 Year
  Sex: Female

DRUGS (3)
  1. MACROBID [Suspect]
     Active Substance: NITROFURANTOIN\NITROFURANTOIN MONOHYDRATE
     Indication: CYSTITIS
  2. IMBRUVICA [Suspect]
     Active Substance: IBRUTINIB
     Indication: CHRONIC LYMPHOCYTIC LEUKAEMIA
     Route: 048
     Dates: start: 20170129, end: 20170130
  3. IMBRUVICA [Suspect]
     Active Substance: IBRUTINIB
     Indication: CHRONIC LYMPHOCYTIC LEUKAEMIA
     Route: 048
     Dates: start: 20161007

REACTIONS (21)
  - White blood cell count abnormal [Unknown]
  - Failure to thrive [Unknown]
  - Haemoglobin decreased [Recovering/Resolving]
  - Product use issue [Recovered/Resolved]
  - Fluid retention [Not Recovered/Not Resolved]
  - Pneumonia [Unknown]
  - Oral herpes [Unknown]
  - Peripheral vascular disorder [Unknown]
  - Rash pruritic [Not Recovered/Not Resolved]
  - Asthenia [Not Recovered/Not Resolved]
  - Death [Fatal]
  - Cardiac failure [Not Recovered/Not Resolved]
  - Cystitis [Unknown]
  - Chronic kidney disease [Unknown]
  - Fall [Unknown]
  - Cellulitis [Unknown]
  - Skin disorder [Not Recovered/Not Resolved]
  - Platelet count abnormal [Unknown]
  - Influenza [Unknown]
  - Off label use [Recovered/Resolved]
  - Dry skin [Not Recovered/Not Resolved]

NARRATIVE: CASE EVENT DATE: 201611
